FAERS Safety Report 6591340-9 (Version None)
Quarter: 2010Q1

REPORT INFORMATION
  Report Type: 
  Country: None (occurrence: None)
  Receive Date: 20100219
  Receipt Date: 20100215
  Transmission Date: 20100710
  Serious: Yes (Other)
  Sender: FDA-Public Use
  Company Number: TR-TEVA-224402ISR

PATIENT
  Age: 52 Year
  Sex: Female

DRUGS (5)
  1. DOXORUBICIN [Suspect]
     Indication: NON-HODGKIN'S LYMPHOMA
  2. VINCRISTINE [Suspect]
     Indication: NON-HODGKIN'S LYMPHOMA
  3. RITUXIMAB [Suspect]
     Indication: NON-HODGKIN'S LYMPHOMA
  4. CYCLOPHOSPHAMIDE [Suspect]
     Indication: NON-HODGKIN'S LYMPHOMA
  5. PREDNISOLONE [Suspect]
     Indication: NON-HODGKIN'S LYMPHOMA

REACTIONS (1)
  - HEPATITIS B [None]
